FAERS Safety Report 21632356 (Version 1)
Quarter: 2022Q4

REPORT INFORMATION
  Report Type: Spontaneous
  Country: US (occurrence: US)
  Receive Date: 20221123
  Receipt Date: 20221123
  Transmission Date: 20230113
  Serious: No
  Sender: FDA-Public Use
  Company Number: US-SANOFI-01368275

PATIENT
  Age: 65 Year
  Sex: Male

DRUGS (1)
  1. DUPIXENT [Suspect]
     Active Substance: DUPILUMAB
     Indication: Dermatitis atopic
     Dosage: 2 DF
     Dates: start: 20221111

REACTIONS (5)
  - Miliaria [Unknown]
  - Scratch [Unknown]
  - Pain in extremity [Unknown]
  - Skin erosion [Unknown]
  - Petechiae [Unknown]

NARRATIVE: CASE EVENT DATE: 20221111
